FAERS Safety Report 6466056-X (Version None)
Quarter: 2009Q4

REPORT INFORMATION
  Report Type: 
  Country: None (occurrence: None)
  Receive Date: 20091202
  Receipt Date: 20040723
  Transmission Date: 20100525
  Serious: Yes (Hospitalization, Other)
  Sender: FDA-Public Use
  Company Number: NL-JNJFOC-20091108039

PATIENT
  Age: 54 Year
  Sex: Female

DRUGS (8)
  1. ARESTAL [Suspect]
     Dosage: 2 MG THRICE A DAY
     Route: 065
  2. ARESTAL [Suspect]
     Indication: DRUG USE FOR UNKNOWN INDICATION
     Dosage: 1 MG THRICE
     Route: 065
  3. FERROUS FUMARATE [Concomitant]
     Dosage: 2 X 200 MG/DAY
     Route: 065
  4. PANTOZOL [Concomitant]
     Dosage: 2 X 40 MG/DAY
     Route: 065
  5. TEMAZEPAM [Concomitant]
     Dosage: 1 X 10 MG
     Route: 065
  6. CALCI-CHEW [Concomitant]
     Dosage: 2 X 1 G/DAY
     Route: 065
  7. DIHYDRAL [Concomitant]
     Dosage: 2 X 0.2 MG/DAY
     Route: 065
  8. SODIUM CHLORIDE [Concomitant]
     Dosage: 2 X2 G/DAY
     Route: 065

REACTIONS (7)
  - BLOOD ALBUMIN INCREASED [None]
  - DEHYDRATION [None]
  - DIARRHOEA [None]
  - DRUG INEFFECTIVE [None]
  - HAEMOGLOBIN INCREASED [None]
  - HYPONATRAEMIA [None]
  - RENAL FAILURE [None]
